FAERS Safety Report 18222491 (Version 2)
Quarter: 2020Q4

REPORT INFORMATION
  Report Type: Spontaneous
  Country: FR (occurrence: FR)
  Receive Date: 20200902
  Receipt Date: 20201130
  Transmission Date: 20210113
  Serious: Yes (Death, Hospitalization, Other)
  Sender: FDA-Public Use
  Company Number: FR-PFIZER INC-2020326729

PATIENT
  Age: 75 Year
  Sex: Male

DRUGS (48)
  1. CEFTAROLINE FOSAMIL [Suspect]
     Active Substance: CEFTAROLINE FOSAMIL
     Indication: BACTERAEMIA
     Dosage: UNK
  2. AVIBACTAM SODIUM/CEFTAZIDIME PENTAHYDRATE [Suspect]
     Active Substance: AVIBACTAM SODIUM\CEFTAZIDIME
     Indication: PERITONITIS
  3. MEROPENEM. [Suspect]
     Active Substance: MEROPENEM
     Indication: PNEUMONIA
  4. PIPERACILLIN/TAZOBACTAM [Suspect]
     Active Substance: PIPERACILLIN SODIUM\TAZOBACTAM SODIUM
     Indication: BACTERAEMIA
     Dosage: UNK
  5. CIPROFLOXACIN. [Suspect]
     Active Substance: CIPROFLOXACIN
     Indication: ANTIBIOTIC THERAPY
     Dosage: UNK
  6. AMIKACIN. [Suspect]
     Active Substance: AMIKACIN
     Indication: BACTERAEMIA
     Dosage: UNK
  7. LINEZOLID. [Suspect]
     Active Substance: LINEZOLID
     Indication: BACTERAEMIA
     Dosage: UNK
  8. MEROPENEM. [Suspect]
     Active Substance: MEROPENEM
     Indication: PERITONITIS
  9. CEFEPIME [Suspect]
     Active Substance: CEFEPIME HYDROCHLORIDE
     Indication: ANTIBIOTIC THERAPY
     Dosage: UNK
  10. DAPTOMYCIN. [Suspect]
     Active Substance: DAPTOMYCIN
     Indication: BACTERAEMIA
     Dosage: UNK
  11. VANCOMYCIN [Suspect]
     Active Substance: VANCOMYCIN
     Indication: BACTERAEMIA
     Dosage: UNK
  12. VANCOMYCIN [Suspect]
     Active Substance: VANCOMYCIN
     Indication: PNEUMONIA
  13. ERYTHROMYCINUM [ERYTHROMYCIN] [Suspect]
     Active Substance: ERYTHROMYCIN
     Indication: PERITONITIS
  14. CEFTAROLINE FOSAMIL [Suspect]
     Active Substance: CEFTAROLINE FOSAMIL
     Indication: PERITONITIS
  15. PIPERACILLIN/TAZOBACTAM [Suspect]
     Active Substance: PIPERACILLIN SODIUM\TAZOBACTAM SODIUM
     Indication: PERITONITIS
  16. CIPROFLOXACIN. [Suspect]
     Active Substance: CIPROFLOXACIN
     Indication: ENTEROBACTER INFECTION
  17. CHLORAMPHENICOL [Suspect]
     Active Substance: CHLORAMPHENICOL
     Indication: ANTIBIOTIC THERAPY
  18. DAPTOMYCIN. [Suspect]
     Active Substance: DAPTOMYCIN
     Indication: PNEUMONIA
  19. VANCOMYCIN [Suspect]
     Active Substance: VANCOMYCIN
     Indication: PERITONITIS
  20. ERYTHROMYCINUM [ERYTHROMYCIN] [Suspect]
     Active Substance: ERYTHROMYCIN
     Indication: BACTERAEMIA
     Dosage: UNK
  21. ERYTHROMYCINUM [ERYTHROMYCIN] [Suspect]
     Active Substance: ERYTHROMYCIN
     Indication: PNEUMONIA
  22. LEVOFLOXACIN. [Suspect]
     Active Substance: LEVOFLOXACIN
     Indication: PNEUMONIA
  23. ERTAPENEM. [Suspect]
     Active Substance: ERTAPENEM SODIUM
     Indication: ENTEROBACTER INFECTION
     Dosage: UNK
  24. DAPTOMYCIN. [Suspect]
     Active Substance: DAPTOMYCIN
     Indication: PERITONITIS
  25. IMIPENEM [Suspect]
     Active Substance: IMIPENEM
     Indication: BACTERAEMIA
     Dosage: UNK
  26. AMIKACIN. [Suspect]
     Active Substance: AMIKACIN
     Indication: PERITONITIS
  27. AVIBACTAM SODIUM/CEFTAZIDIME PENTAHYDRATE [Suspect]
     Active Substance: AVIBACTAM SODIUM\CEFTAZIDIME
     Indication: PNEUMONIA
  28. MEROPENEM. [Suspect]
     Active Substance: MEROPENEM
     Indication: BACTERAEMIA
     Dosage: UNK
  29. ERTAPENEM. [Suspect]
     Active Substance: ERTAPENEM SODIUM
     Indication: ANTIBIOTIC THERAPY
  30. IMIPENEM [Suspect]
     Active Substance: IMIPENEM
     Indication: PNEUMONIA
  31. AMIKACIN. [Suspect]
     Active Substance: AMIKACIN
     Indication: PNEUMONIA
  32. CEFTAROLINE FOSAMIL [Suspect]
     Active Substance: CEFTAROLINE FOSAMIL
     Indication: PNEUMONIA
  33. AVIBACTAM SODIUM/CEFTAZIDIME PENTAHYDRATE [Suspect]
     Active Substance: AVIBACTAM SODIUM\CEFTAZIDIME
     Indication: BACTERAEMIA
     Dosage: UNK
  34. LEVOFLOXACIN. [Suspect]
     Active Substance: LEVOFLOXACIN
     Indication: BACTERAEMIA
     Dosage: UNK
  35. TEMOCILLIN [Suspect]
     Active Substance: TEMOCILLIN
     Indication: ANTIBIOTIC THERAPY
     Dosage: UNK
  36. TIGECYCLINE. [Suspect]
     Active Substance: TIGECYCLINE
     Indication: BACTERAEMIA
     Dosage: UNK
  37. LINEZOLID. [Suspect]
     Active Substance: LINEZOLID
     Indication: PNEUMONIA
  38. LINEZOLID. [Suspect]
     Active Substance: LINEZOLID
     Indication: PERITONITIS
  39. CEFTAZIDIME. [Suspect]
     Active Substance: CEFTAZIDIME
     Indication: ANTIBIOTIC THERAPY
  40. TEMOCILLIN [Suspect]
     Active Substance: TEMOCILLIN
     Indication: ENTEROBACTER INFECTION
  41. IMIPENEM [Suspect]
     Active Substance: IMIPENEM
     Indication: PERITONITIS
  42. TIGECYCLINE. [Suspect]
     Active Substance: TIGECYCLINE
     Indication: PNEUMONIA
  43. TIGECYCLINE. [Suspect]
     Active Substance: TIGECYCLINE
     Indication: PERITONITIS
  44. LEVOFLOXACIN. [Suspect]
     Active Substance: LEVOFLOXACIN
     Indication: PERITONITIS
  45. PIPERACILLIN/TAZOBACTAM [Suspect]
     Active Substance: PIPERACILLIN SODIUM\TAZOBACTAM SODIUM
     Indication: PNEUMONIA
  46. CEFTAZIDIME. [Suspect]
     Active Substance: CEFTAZIDIME
     Indication: ENTEROBACTER INFECTION
     Dosage: UNK
  47. CEFEPIME [Suspect]
     Active Substance: CEFEPIME HYDROCHLORIDE
     Indication: ENTEROBACTER INFECTION
  48. CHLORAMPHENICOL [Suspect]
     Active Substance: CHLORAMPHENICOL
     Indication: ENTEROBACTER INFECTION
     Dosage: UNK

REACTIONS (3)
  - Septic shock [Fatal]
  - Drug resistance [Unknown]
  - Drug ineffective [Fatal]
